FAERS Safety Report 8817222 (Version 2)
Quarter: 2012Q4

REPORT INFORMATION
  Report Type: 
  Country: US (occurrence: US)
  Receive Date: 20121001
  Receipt Date: 20121226
  Transmission Date: 20130627
  Serious: Yes (Other)
  Sender: FDA-Public Use
  Company Number: US-ELI_LILLY_AND_COMPANY-US201209005670

PATIENT
  Sex: Male
  Weight: 105.94 kg

DRUGS (3)
  1. HUMALOG LISPRO [Suspect]
     Indication: TYPE 1 DIABETES MELLITUS
     Dosage: 4 u, other
     Dates: start: 1987
  2. GLUCAGON [Suspect]
     Indication: HYPOGLYCAEMIA
     Dosage: 1 mg, prn
     Dates: start: 2002
  3. HUMULIN NPH [Suspect]
     Indication: TYPE 1 DIABETES MELLITUS
     Dosage: UNK
     Dates: end: 1987

REACTIONS (5)
  - Diabetic vascular disorder [Not Recovered/Not Resolved]
  - Hypoglycaemic unconsciousness [Recovering/Resolving]
  - Underdose [Unknown]
  - Wrong technique in drug usage process [Recovered/Resolved]
  - Incorrect dose administered [Recovered/Resolved]
